FAERS Safety Report 19032336 (Version 2)
Quarter: 2021Q4

REPORT INFORMATION
  Report Type: Spontaneous
  Country: US (occurrence: None)
  Receive Date: 20210319
  Receipt Date: 20211123
  Transmission Date: 20220303
  Serious: Yes (Death, Other)
  Sender: FDA-Public Use
  Company Number: 2021A132591

PATIENT
  Age: 17522 Day
  Sex: Female
  Weight: 124.3 kg

DRUGS (41)
  1. NEXIUM [Suspect]
     Active Substance: ESOMEPRAZOLE MAGNESIUM
     Indication: Gastrooesophageal reflux disease
     Route: 048
     Dates: start: 1998, end: 2018
  2. NEXIUM [Suspect]
     Active Substance: ESOMEPRAZOLE MAGNESIUM
     Indication: Gastrooesophageal reflux disease
     Dosage: 40.0MG UNKNOWN
     Route: 048
     Dates: start: 2001, end: 2018
  3. PRILOSEC [Suspect]
     Active Substance: OMEPRAZOLE MAGNESIUM
     Indication: Gastrooesophageal reflux disease
     Dosage: 40.0MG UNKNOWN
     Route: 048
     Dates: start: 1998, end: 2018
  4. PRILOSEC OTC [Suspect]
     Active Substance: OMEPRAZOLE MAGNESIUM
     Indication: Gastrooesophageal reflux disease
     Route: 048
     Dates: start: 1998, end: 2018
  5. PRILOSEC OTC [Suspect]
     Active Substance: OMEPRAZOLE MAGNESIUM
     Indication: Gastrooesophageal reflux disease
     Route: 048
     Dates: start: 2003, end: 2018
  6. ZESTRIL [Concomitant]
     Active Substance: LISINOPRIL
     Indication: Hypertension
     Dates: start: 2017, end: 2020
  7. LYRICA [Concomitant]
     Active Substance: PREGABALIN
     Indication: Neuralgia
     Dates: start: 2017, end: 2020
  8. ATORVASTATIN [Concomitant]
     Active Substance: ATORVASTATIN
     Indication: Blood cholesterol increased
     Dates: start: 2017, end: 2020
  9. GLIMEPIRIDE [Concomitant]
     Active Substance: GLIMEPIRIDE
     Indication: Diabetes mellitus
     Dates: start: 2017, end: 2020
  10. ASPIRIN [Concomitant]
     Active Substance: ASPIRIN
     Indication: Blood cholesterol increased
     Dates: start: 2017, end: 2020
  11. AMARYL [Concomitant]
     Active Substance: GLIMEPIRIDE
  12. ELIQUIS [Concomitant]
     Active Substance: APIXABAN
  13. HUMALOG [Concomitant]
     Active Substance: INSULIN LISPRO
  14. LANTUS [Concomitant]
     Active Substance: INSULIN GLARGINE
  15. METOPROLOL TARTRATE [Concomitant]
     Active Substance: METOPROLOL TARTRATE
  16. LEVOTHYROXINE [Concomitant]
     Active Substance: LEVOTHYROXINE
  17. ULTRAM [Concomitant]
     Active Substance: TRAMADOL HYDROCHLORIDE
  18. PRAZOSIN [Concomitant]
     Active Substance: PRAZOSIN
  19. XANAX [Concomitant]
     Active Substance: ALPRAZOLAM
  20. ALBUTEROL [Concomitant]
     Active Substance: ALBUTEROL
  21. ALPRAZOLAM [Concomitant]
     Active Substance: ALPRAZOLAM
  22. FLONASE [Concomitant]
     Active Substance: FLUTICASONE PROPIONATE
  23. CLOTRIMAZOLE [Concomitant]
     Active Substance: CLOTRIMAZOLE
  24. DOXYCYCLINE [Concomitant]
     Active Substance: DOXYCYCLINE
  25. GABAPENTIN [Concomitant]
     Active Substance: GABAPENTIN
  26. LIPITOR [Concomitant]
     Active Substance: ATORVASTATIN CALCIUM
  27. OXYBUTYNIN [Concomitant]
     Active Substance: OXYBUTYNIN
  28. TRAMADOL [Concomitant]
     Active Substance: TRAMADOL
  29. ZOFRAN [Concomitant]
     Active Substance: ONDANSETRON HYDROCHLORIDE
  30. VISTARIL [Concomitant]
     Active Substance: HYDROXYZINE PAMOATE
  31. APIXABAN [Concomitant]
     Active Substance: APIXABAN
  32. INSULIN NOS [Concomitant]
     Active Substance: INSULIN NOS
  33. ZETIA [Concomitant]
     Active Substance: EZETIMIBE
  34. HYDROXYINE [Concomitant]
  35. METOPROLOL [Concomitant]
     Active Substance: METOPROLOL
  36. LEVEMIR [Concomitant]
     Active Substance: INSULIN DETEMIR
  37. VITAMIN D2 [Concomitant]
     Active Substance: ERGOCALCIFEROL
  38. PROAIR HFA [Concomitant]
     Active Substance: ALBUTEROL SULFATE
  39. AMLODIPINE [Concomitant]
     Active Substance: AMLODIPINE BESYLATE
  40. BUSPIRONE [Concomitant]
     Active Substance: BUSPIRONE HYDROCHLORIDE
  41. FOLIC ACID [Concomitant]
     Active Substance: FOLIC ACID

REACTIONS (5)
  - Death [Fatal]
  - Acute kidney injury [Not Recovered/Not Resolved]
  - Chronic kidney disease [Not Recovered/Not Resolved]
  - Renal failure [Unknown]
  - Renal tubular necrosis [Unknown]

NARRATIVE: CASE EVENT DATE: 20170323
